FAERS Safety Report 6401293-1 (Version None)
Quarter: 2009Q4

REPORT INFORMATION
  Report Type: 
  Country: None (occurrence: None)
  Receive Date: 20091015
  Receipt Date: 20091005
  Transmission Date: 20100525
  Serious: Yes (Other)
  Sender: FDA-Public Use
  Company Number: PHHY2009KR42647

PATIENT
  Age: 48 Year
  Sex: Male

DRUGS (1)
  1. CYCLOSPORINE [Suspect]
     Indication: LIVER TRANSPLANT

REACTIONS (4)
  - CONVULSION [None]
  - OSMOTIC DEMYELINATION SYNDROME [None]
  - QUADRIPARESIS [None]
  - STUPOR [None]
